FAERS Safety Report 15160437 (Version 1)
Quarter: 2018Q3

REPORT INFORMATION
  Report Type: Report from Study
  Country: GB (occurrence: GB)
  Receive Date: 20180718
  Receipt Date: 20180718
  Transmission Date: 20181010
  Serious: Yes (Disabling)
  Sender: FDA-Public Use
  Company Number: GB-ASTRAZENECA-2018SE89623

PATIENT
  Age: 24940 Day
  Sex: Male

DRUGS (12)
  1. MEDI4736 [Suspect]
     Active Substance: DURVALUMAB
     Indication: NEOPLASM MALIGNANT
     Route: 042
     Dates: start: 20180529, end: 20180529
  2. AZD6738 [Suspect]
     Active Substance: CERALASERTIB
     Indication: NEOPLASM MALIGNANT
     Route: 048
     Dates: start: 20180515, end: 20180528
  3. VENTOLIN [Concomitant]
     Active Substance: ALBUTEROL SULFATE
     Indication: SEASONAL ALLERGY
     Dosage: 2 PUFF
     Route: 055
     Dates: start: 20180420
  4. CETIRIZINE [Concomitant]
     Active Substance: CETIRIZINE HYDROCHLORIDE
     Indication: SEASONAL ALLERGY
     Route: 048
     Dates: start: 20180420
  5. MEDI4736 [Suspect]
     Active Substance: DURVALUMAB
     Indication: NEOPLASM MALIGNANT
     Route: 042
     Dates: start: 20180501, end: 20180501
  6. AZD6738 [Suspect]
     Active Substance: CERALASERTIB
     Indication: NEOPLASM MALIGNANT
     Route: 048
     Dates: start: 20180612, end: 20180625
  7. AZD6738 [Suspect]
     Active Substance: CERALASERTIB
     Indication: NEOPLASM MALIGNANT
     Route: 048
     Dates: start: 20180320, end: 20180320
  8. AZD6738 [Suspect]
     Active Substance: CERALASERTIB
     Indication: NEOPLASM MALIGNANT
     Route: 048
     Dates: start: 20180417, end: 20180419
  9. AZD6738 [Suspect]
     Active Substance: CERALASERTIB
     Indication: NEOPLASM MALIGNANT
     Route: 048
     Dates: start: 20180321, end: 20180402
  10. AZD6738 [Suspect]
     Active Substance: CERALASERTIB
     Indication: NEOPLASM MALIGNANT
     Route: 048
     Dates: start: 20180420, end: 20180420
  11. MEDI4736 [Suspect]
     Active Substance: DURVALUMAB
     Indication: NEOPLASM MALIGNANT
     Route: 042
     Dates: start: 20180403, end: 20180403
  12. AZD6738 [Suspect]
     Active Substance: CERALASERTIB
     Indication: NEOPLASM MALIGNANT
     Route: 048
     Dates: start: 20180421, end: 20180430

REACTIONS (1)
  - Autoimmune arthritis [Not Recovered/Not Resolved]

NARRATIVE: CASE EVENT DATE: 20180626
